FAERS Safety Report 24028195 (Version 1)
Quarter: 2024Q2

REPORT INFORMATION
  Report Type: Report from Study
  Country: US (occurrence: US)
  Receive Date: 20240628
  Receipt Date: 20240628
  Transmission Date: 20240716
  Serious: Yes (Other)
  Sender: FDA-Public Use
  Company Number: US-TAKEDA-2024TUS024647

PATIENT
  Sex: Male

DRUGS (2)
  1. FRUQUINTINIB [Suspect]
     Active Substance: FRUQUINTINIB
     Indication: Rectal cancer
     Dosage: 5 MILLIGRAM
     Route: 048
     Dates: start: 20231213
  2. FRUQUINTINIB [Suspect]
     Active Substance: FRUQUINTINIB
     Dosage: 5 MILLIGRAM
     Route: 048

REACTIONS (6)
  - Rectal cancer [Not Recovered/Not Resolved]
  - Headache [Recovering/Resolving]
  - Burning sensation [Recovering/Resolving]
  - Fatigue [Unknown]
  - Back pain [Recovering/Resolving]
  - Diarrhoea [Recovering/Resolving]
